FAERS Safety Report 21591954 (Version 2)
Quarter: 2023Q2

REPORT INFORMATION
  Report Type: Spontaneous
  Country: IT (occurrence: IT)
  Receive Date: 20221114
  Receipt Date: 20230422
  Transmission Date: 20230722
  Serious: Yes (Life-Threatening, Hospitalization, Other)
  Sender: FDA-Public Use
  Company Number: IT-Accord-284945

PATIENT
  Age: 2 Day
  Sex: Male

DRUGS (11)
  1. LEVETIRACETAM [Suspect]
     Active Substance: LEVETIRACETAM
     Indication: Seizure
     Dosage: LOAD DOSE
  2. MIDAZOLAM HYDROCHLORIDE [Suspect]
     Active Substance: MIDAZOLAM HYDROCHLORIDE
     Indication: Seizure
     Dosage: PROGRESSIVELY REDUCED??DOSAGE FORM: SOLUTION FOR INJECTION/INFUSION
  3. FENTANYL [Suspect]
     Active Substance: FENTANYL
     Indication: Hypoxic-ischaemic encephalopathy
  4. PHENOBARBITAL [Suspect]
     Active Substance: PHENOBARBITAL
     Indication: Seizure
     Dosage: MAINTENANCE DOSE 5 MG/(KG/D)
  5. EPINEPHRINE [Concomitant]
     Active Substance: EPINEPHRINE
     Indication: Heart rate abnormal
  6. MIDAZOLAM HYDROCHLORIDE [Suspect]
     Active Substance: MIDAZOLAM HYDROCHLORIDE
     Indication: Seizure
     Dosage: PROGRESSIVELY REDUCED
  7. PHENOBARBITAL [Suspect]
     Active Substance: PHENOBARBITAL
     Indication: Seizure
     Dosage: LOAD DOSE
  8. FENTANYL [Suspect]
     Active Substance: FENTANYL
     Indication: Hypoxic-ischaemic encephalopathy
  9. LEVETIRACETAM [Suspect]
     Active Substance: LEVETIRACETAM
     Indication: Seizure
     Dosage: MAINTENANCE DOSE
  10. MIDAZOLAM HYDROCHLORIDE [Suspect]
     Active Substance: MIDAZOLAM HYDROCHLORIDE
     Indication: Seizure
     Dosage: DOSAGE FORM: SOLUTION FOR INJECTION/INFUSION
  11. MIDAZOLAM HYDROCHLORIDE [Suspect]
     Active Substance: MIDAZOLAM HYDROCHLORIDE
     Indication: Seizure
     Dosage: 0.06 MG/(KG/H)??DOSAGE FORM: SOLUTION FOR INJECTION/INFUSION

REACTIONS (3)
  - Coma neonatal [Recovered/Resolved]
  - Electroencephalogram abnormal [Recovered/Resolved]
  - Off label use [Unknown]
